FAERS Safety Report 15090051 (Version 2)
Quarter: 2018Q3

REPORT INFORMATION
  Report Type: Report from Study
  Country: US (occurrence: US)
  Receive Date: 20180629
  Receipt Date: 20180702
  Transmission Date: 20181010
  Serious: Yes (Other)
  Sender: FDA-Public Use
  Company Number: US-TEVA-2018-US-914159

PATIENT
  Sex: Female

DRUGS (1)
  1. COPAXONE [Suspect]
     Active Substance: GLATIRAMER ACETATE
     Indication: MULTIPLE SCLEROSIS
     Route: 058
     Dates: start: 20180110

REACTIONS (6)
  - Nausea [Unknown]
  - Anaphylactic shock [Unknown]
  - Flushing [Unknown]
  - Chest discomfort [Unknown]
  - Immediate post-injection reaction [Unknown]
  - Muscle spasms [Unknown]
